FAERS Safety Report 15312737 (Version 2)
Quarter: 2018Q3

REPORT INFORMATION
  Report Type: Spontaneous
  Country: PL (occurrence: PL)
  Receive Date: 20180823
  Receipt Date: 20180829
  Transmission Date: 20181010
  Serious: Yes (Other)
  Sender: FDA-Public Use
  Company Number: PHHY2018PL075681

PATIENT
  Age: 33 Year
  Sex: Male

DRUGS (6)
  1. SALBUTAMOL [Suspect]
     Active Substance: ALBUTEROL
     Indication: DYSPNOEA
     Dosage: 5 MG, UNK INHALATION
     Route: 055
  2. HYDROCORTISON [Suspect]
     Active Substance: HYDROCORTISONE
     Indication: KOUNIS SYNDROME
  3. EPINEPHRINE. [Suspect]
     Active Substance: EPINEPHRINE
     Indication: ANAPHYLACTIC SHOCK
     Dosage: 0.3 MG, UNK
     Route: 030
  4. CLEMASTINE [Suspect]
     Active Substance: CLEMASTINE
     Indication: KOUNIS SYNDROME
     Dosage: 2 MG, UNK
     Route: 065
  5. CLEMASTINE [Suspect]
     Active Substance: CLEMASTINE
     Indication: ANAPHYLACTIC SHOCK
  6. HYDROCORTISON [Suspect]
     Active Substance: HYDROCORTISONE
     Indication: ANAPHYLACTIC SHOCK
     Dosage: 300 MG, UNK
     Route: 030

REACTIONS (2)
  - Drug ineffective [Unknown]
  - Arteriospasm coronary [Unknown]
